FAERS Safety Report 7327891-9 (Version None)
Quarter: 2011Q1

REPORT INFORMATION
  Report Type: 
  Country: None (occurrence: None)
  Receive Date: 20110216
  Receipt Date: 20110203
  Transmission Date: 20110831
  Serious: Yes (Other)
  Sender: FDA-Public Use
  Company Number: DSA_44938_2011

PATIENT
  Age: 49 Year
  Sex: Female

DRUGS (2)
  1. TYLENOL-500 [Concomitant]
  2. BUPROPION HYDROCHLORIDE [Suspect]
     Indication: SMOKING CESSATION THERAPY
     Dosage: DF
     Dates: start: 20110116, end: 20110101

REACTIONS (11)
  - INSOMNIA [None]
  - BLISTER [None]
  - WOUND SECRETION [None]
  - ANGER [None]
  - FATIGUE [None]
  - RASH GENERALISED [None]
  - CIRCADIAN RHYTHM SLEEP DISORDER [None]
  - AGGRESSION [None]
  - AGITATION [None]
  - EYELID DISORDER [None]
  - NERVOUSNESS [None]
